FAERS Safety Report 21082485 (Version 1)
Quarter: 2022Q3

REPORT INFORMATION
  Report Type: Spontaneous
  Country: US (occurrence: None)
  Receive Date: 20220714
  Receipt Date: 20220714
  Transmission Date: 20221026
  Serious: Yes (Hospitalization)
  Sender: FDA-Public Use
  Company Number: None

PATIENT
  Age: 61 Year
  Sex: Male

DRUGS (1)
  1. AZTREONAM [Suspect]
     Active Substance: AZTREONAM
     Dosage: FREQUENCY : ONCE.;?
     Route: 058
     Dates: start: 20220623, end: 20220623

REACTIONS (7)
  - Angioedema [None]
  - Hypoxia [None]
  - Bronchospasm [None]
  - Anaphylactic reaction [None]
  - Tachycardia [None]
  - Hypotension [None]
  - Hyperhidrosis [None]

NARRATIVE: CASE EVENT DATE: 20220623
